FAERS Safety Report 9439051 (Version 2)
Quarter: 2013Q3

REPORT INFORMATION
  Report Type: Spontaneous
  Country: US (occurrence: US)
  Receive Date: 20130802
  Receipt Date: 20130909
  Transmission Date: 20140515
  Serious: Yes (Other)
  Sender: FDA-Public Use
  Company Number: US-ABBOTT-13P-163-1127550-00

PATIENT
  Sex: Female

DRUGS (1)
  1. SYNTHROID [Suspect]
     Indication: HYPOTHYROIDISM

REACTIONS (4)
  - Pancreatic carcinoma [Not Recovered/Not Resolved]
  - Malabsorption [Unknown]
  - Adverse drug reaction [Unknown]
  - Blood thyroid stimulating hormone abnormal [Recovered/Resolved]
